FAERS Safety Report 22074792 (Version 2)
Quarter: 2023Q1

REPORT INFORMATION
  Report Type: Spontaneous
  Country: US (occurrence: US)
  Receive Date: 20230308
  Receipt Date: 20230317
  Transmission Date: 20230417
  Serious: Yes (Death)
  Sender: FDA-Public Use
  Company Number: US-ABBVIE-4332111

PATIENT

DRUGS (1)
  1. LUPRON [Suspect]
     Active Substance: LEUPROLIDE ACETATE
     Indication: Product used for unknown indication
     Route: 065

REACTIONS (6)
  - Atrophy [Fatal]
  - Chemical burn [Unknown]
  - Neuropathy peripheral [Unknown]
  - Alopecia [Unknown]
  - Chemical poisoning [Fatal]
  - Tooth loss [Unknown]
